FAERS Safety Report 6243459-X (Version None)
Quarter: 2009Q2

REPORT INFORMATION
  Report Type: 
  Country: None (occurrence: None)
  Receive Date: 20090624
  Receipt Date: 20090615
  Transmission Date: 20091009
  Serious: Yes (Hospitalization)
  Sender: FDA-Public Use
  Company Number: US-AVENTIS-200915340US

PATIENT
  Age: 35 Year
  Sex: Male

DRUGS (5)
  1. LANTUS [Suspect]
     Route: 058
     Dates: start: 20070101
  2. METOPROLOL TARTRATE [Concomitant]
  3. METFORMIN [Concomitant]
  4. SIMVASTATIN [Concomitant]
  5. BUPROPION ORAL [Concomitant]
     Route: 048

REACTIONS (3)
  - LOCALISED INFECTION [None]
  - OEDEMA PERIPHERAL [None]
  - SKIN LACERATION [None]
